FAERS Safety Report 22073819 (Version 1)
Quarter: 2023Q1

REPORT INFORMATION
  Report Type: Spontaneous
  Country: CN (occurrence: CN)
  Receive Date: 20230308
  Receipt Date: 20230308
  Transmission Date: 20230417
  Serious: Yes (Other)
  Sender: FDA-Public Use
  Company Number: CN-PFIZER INC-PV202300042402

PATIENT
  Age: 36 Year
  Sex: Male
  Weight: 62.2 kg

DRUGS (4)
  1. TYGACIL [Suspect]
     Active Substance: TIGECYCLINE
     Indication: Plasma cell myeloma
     Dosage: 100 MG, 1X/DAY
     Route: 041
     Dates: start: 20230215
  2. TYGACIL [Suspect]
     Active Substance: TIGECYCLINE
     Indication: Abdominal infection
     Dosage: 50 MG, 2X/DAY
     Route: 041
     Dates: end: 20230223
  3. SODIUM CHLORIDE [Suspect]
     Active Substance: SODIUM CHLORIDE
     Dosage: 100 ML, 1X/DAY
     Route: 041
     Dates: start: 20230215
  4. SODIUM CHLORIDE [Suspect]
     Active Substance: SODIUM CHLORIDE
     Dosage: 100 ML, 2X/DAY
     Route: 041
     Dates: end: 20230223

REACTIONS (1)
  - Coagulation time prolonged [Recovering/Resolving]

NARRATIVE: CASE EVENT DATE: 20230216
